FAERS Safety Report 14006779 (Version 1)
Quarter: 2017Q3

REPORT INFORMATION
  Report Type: Spontaneous
  Country: US (occurrence: US)
  Receive Date: 20170925
  Receipt Date: 20170925
  Transmission Date: 20171128
  Serious: No
  Sender: FDA-Public Use
  Company Number: US-PFIZER INC-2017369760

PATIENT
  Age: 78 Year
  Sex: Female

DRUGS (1)
  1. IBRANCE [Suspect]
     Active Substance: PALBOCICLIB
     Indication: BREAST CANCER METASTATIC
     Dosage: 100 MG, 1X/DAY

REACTIONS (8)
  - Rash [Unknown]
  - Urinary incontinence [Unknown]
  - Asthenia [Unknown]
  - Bone pain [Unknown]
  - Rash macular [Unknown]
  - Muscle disorder [Unknown]
  - Pruritus generalised [Unknown]
  - Myalgia [Unknown]
